FAERS Safety Report 4321063-8 (Version None)
Quarter: 2004Q1

REPORT INFORMATION
  Report Type: 
  Country: None (occurrence: None)
  Receive Date: 20040318
  Receipt Date: 20040302
  Transmission Date: 20041129
  Serious: Yes (Other)
  Sender: FDA-Public Use
  Company Number: 188148

PATIENT
  Age: 40 Year
  Sex: Female
  Weight: 74 kg

DRUGS (2)
  1. AVONEX [Suspect]
     Indication: MULTIPLE SCLEROSIS
     Dates: start: 19960101, end: 20031122
  2. NATALIZUMAB VS. PLACEBO [Concomitant]

REACTIONS (12)
  - INJECTION SITE ABSCESS [None]
  - INJECTION SITE DESQUAMATION [None]
  - INJECTION SITE ERYTHEMA [None]
  - INJECTION SITE PAIN [None]
  - LEUKOPLAKIA ORAL [None]
  - MARKEDLY REDUCED DIETARY INTAKE [None]
  - OLIGURIA [None]
  - PHARYNGOLARYNGEAL PAIN [None]
  - PYREXIA [None]
  - RASH PRURITIC [None]
  - SWOLLEN TONGUE [None]
  - VAGINAL LEUKOPLAKIA [None]
